FAERS Safety Report 8193954-1 (Version None)
Quarter: 2012Q1

REPORT INFORMATION
  Report Type: 
  Country: None (occurrence: None)
  Receive Date: 20120308
  Receipt Date: 20120228
  Transmission Date: 20120608
  Serious: Yes (Death, Other)
  Sender: FDA-Public Use
  Company Number: JP-AMGEN-JPNCT2011007121

PATIENT
  Age: 73 Year
  Sex: Male
  Weight: 40 kg

DRUGS (3)
  1. HIRUDOID [Concomitant]
     Dosage: UNK
     Route: 062
  2. PANITUMUMAB [Suspect]
     Indication: COLORECTAL CANCER
     Dosage: 6 MG, Q2WK
     Route: 041
     Dates: start: 20101029, end: 20101125
  3. TERRA-CORTRIL [Concomitant]
     Dosage: UNK
     Route: 062

REACTIONS (2)
  - INTERSTITIAL LUNG DISEASE [None]
  - COLORECTAL CANCER [None]
